FAERS Safety Report 9842981 (Version 1)
Quarter: 2013Q4

REPORT INFORMATION
  Report Type: Spontaneous
  Country: US (occurrence: None)
  Receive Date: 20131211
  Receipt Date: 20131211
  Transmission Date: 20140711
  Serious: Yes (Hospitalization)
  Sender: FDA-Public Use
  Company Number: ALL1-2012-06710

PATIENT
  Age: 40 Year
  Sex: Female
  Weight: 47.6 kg

DRUGS (1)
  1. LIALDA [Suspect]
     Indication: COLITIS ULCERATIVE
     Dosage: 2.4 GM (TWO, 1.2 GM TABLETS), 1X/DAY:QD, ORAL
     Route: 048
     Dates: start: 201001, end: 2010

REACTIONS (4)
  - Abdominal pain upper [None]
  - Crohn^s disease [None]
  - Colitis [None]
  - Infection [None]
